FAERS Safety Report 8570862 (Version 2)
Quarter: 2014Q1

REPORT INFORMATION
  Report Type: Spontaneous
  Country: US (occurrence: US)
  Receive Date: 20120521
  Receipt Date: 20140116
  Transmission Date: 20141002
  Serious: Yes (Hospitalization, Other)
  Sender: FDA-Public Use
  Company Number: US-ASTRAZENECA-2012SE17829

PATIENT
  Age: 76 Year
  Sex: Female
  Weight: 68 kg

DRUGS (2)
  1. NEXIUM [Suspect]
     Indication: VOMITING
     Route: 048
     Dates: end: 2013
  2. MEDICATIONS [Concomitant]

REACTIONS (15)
  - Multiple fractures [Unknown]
  - Road traffic accident [Unknown]
  - Pyrexia [Unknown]
  - Vomiting [Recovered/Resolved]
  - Diarrhoea [Unknown]
  - Mental impairment [Unknown]
  - Musculoskeletal discomfort [Unknown]
  - Gastric polyps [Unknown]
  - Osteoporosis [Unknown]
  - Headache [Unknown]
  - Abdominal discomfort [Not Recovered/Not Resolved]
  - Cataract [Unknown]
  - Visual acuity reduced [Unknown]
  - Off label use [Unknown]
  - Drug dose omission [Not Recovered/Not Resolved]
